FAERS Safety Report 5991428-7 (Version None)
Quarter: 2008Q4

REPORT INFORMATION
  Report Type: 
  Country: None (occurrence: None)
  Receive Date: 20081202
  Receipt Date: 20071231
  Transmission Date: 20090506
  Serious: Yes (Hospitalization)
  Sender: FDA-Public Use
  Company Number: WAES 0801USA00067

PATIENT
  Sex: Female

DRUGS (4)
  1. FOSAMAX [Suspect]
     Indication: OSTEOPOROSIS
     Dosage: PO
     Route: 048
  2. BONIVA [Suspect]
     Indication: OSTEOPOROSIS
     Dosage: 150 MG/PO
     Route: 048
     Dates: start: 20071209
  3. FORTEO [Suspect]
     Indication: OSTEOPOROSIS
  4. PROTONIX [Concomitant]

REACTIONS (5)
  - CHOKING SENSATION [None]
  - EROSIVE OESOPHAGITIS [None]
  - GASTROOESOPHAGEAL REFLUX DISEASE [None]
  - MASS [None]
  - MUSCLE SPASMS [None]
